FAERS Safety Report 9395157 (Version 1)
Quarter: 2013Q3

REPORT INFORMATION
  Report Type: Spontaneous
  Country: US (occurrence: US)
  Receive Date: 20130711
  Receipt Date: 20130711
  Transmission Date: 20140515
  Serious: Yes (Hospitalization, Other)
  Sender: FDA-Public Use
  Company Number: US-PFIZER INC-2011275614

PATIENT
  Age: 66 Year
  Sex: Female
  Weight: 72.56 kg

DRUGS (5)
  1. DILANTIN [Suspect]
     Indication: CONVULSION
     Dosage: 2 TABLETS EACH OF 100 IN MORNING AND 3 TABLETS EACH OF 100 MG AT NIGHT IN A DAY
     Dates: start: 1973
  2. PHENYTOIN SODIUM [Suspect]
     Indication: CONVULSION
     Dosage: UNK
  3. GLYBURIDE [Concomitant]
     Dosage: UNK
  4. GLIPIZIDE [Concomitant]
     Dosage: UNK
  5. METFORMIN [Concomitant]
     Dosage: UNK

REACTIONS (3)
  - Back disorder [Unknown]
  - Convulsion [Recovered/Resolved]
  - Drug ineffective [Unknown]
